FAERS Safety Report 4847497-0 (Version None)
Quarter: 2005Q4

REPORT INFORMATION
  Report Type: 
  Country: None (occurrence: None)
  Receive Date: 20051205
  Receipt Date: 20051123
  Transmission Date: 20060501
  Serious: Yes (Hospitalization, Other)
  Sender: FDA-Public Use
  Company Number: HQWYE499010NOV05

PATIENT
  Age: 40 Year
  Sex: Male

DRUGS (4)
  1. RAPAMUNE [Suspect]
     Indication: PROPHYLAXIS AGAINST TRANSPLANT REJECTION
     Dosage: 2 MG 1X PER 1 DAY; 3 MG 1X PER 1 DAY
     Route: 048
     Dates: start: 20050109, end: 20050118
  2. RAPAMUNE [Suspect]
     Indication: PROPHYLAXIS AGAINST TRANSPLANT REJECTION
     Dosage: 2 MG 1X PER 1 DAY; 3 MG 1X PER 1 DAY
     Route: 048
     Dates: start: 20050119
  3. CYCLOSPORINE [Concomitant]
  4. PREDNISONE TAB [Concomitant]

REACTIONS (2)
  - HAEMODIALYSIS [None]
  - RENAL TUBULAR NECROSIS [None]
